FAERS Safety Report 15074008 (Version 1)
Quarter: 2018Q2

REPORT INFORMATION
  Report Type: Spontaneous
  Country: US (occurrence: US)
  Receive Date: 20180627
  Receipt Date: 20180627
  Transmission Date: 20180711
  Serious: Yes (Hospitalization)
  Sender: FDA-Public Use
  Company Number: US-MYLANLABS-2018M1045089

PATIENT
  Age: 12 Year
  Sex: Male

DRUGS (3)
  1. BACLOFEN. [Suspect]
     Active Substance: BACLOFEN
     Indication: DIPLEGIA
  2. BACLOFEN. [Suspect]
     Active Substance: BACLOFEN
     Indication: CEREBRAL PALSY
  3. BACLOFEN. [Suspect]
     Active Substance: BACLOFEN
     Indication: FOCAL DYSCOGNITIVE SEIZURES
     Dosage: INTRATHECAL BACLOFEN PUMP
     Route: 037

REACTIONS (6)
  - Hypotonia [Unknown]
  - Altered state of consciousness [Unknown]
  - Toxicity to various agents [Unknown]
  - Urinary retention [Unknown]
  - Device issue [Unknown]
  - Vomiting [Unknown]
